FAERS Safety Report 4708342-7 (Version None)
Quarter: 2005Q3

REPORT INFORMATION
  Report Type: 
  Country: None (occurrence: None)
  Receive Date: 20050705
  Receipt Date: 20050705
  Transmission Date: 20060218
  Serious: Yes (Life-Threatening, Hospitalization)
  Sender: FDA-Public Use
  Company Number: None

PATIENT
  Age: 68 Year
  Sex: Male
  Weight: 145.151 kg

DRUGS (12)
  1. FLOMAX [Suspect]
     Indication: HYPOTENSION
     Dosage: 2 TABS ORAL
     Route: 048
     Dates: start: 20050630, end: 20050630
  2. FLOMAX [Suspect]
     Indication: RENAL FAILURE ACUTE
     Dosage: 2 TABS ORAL
     Route: 048
     Dates: start: 20050630, end: 20050630
  3. METFORMIN [Concomitant]
  4. PROTONIX [Concomitant]
  5. NIFEDIPINE [Concomitant]
  6. GEMFIBROZIL [Concomitant]
  7. GABAPENTIN [Concomitant]
  8. ENALAPRIL MALEATE [Concomitant]
  9. LOVASTATIN [Concomitant]
  10. TEMAZAPAM [Concomitant]
  11. QUININE SULFATE [Concomitant]
  12. DESIPRAMINE [Concomitant]

REACTIONS (3)
  - ABDOMINAL PAIN [None]
  - HYPERHIDROSIS [None]
  - HYPOTENSION [None]
